FAERS Safety Report 8000608-0 (Version None)
Quarter: 2011Q4

REPORT INFORMATION
  Report Type: 
  Country: None (occurrence: None)
  Receive Date: 20111216
  Receipt Date: 20111209
  Transmission Date: 20120403
  Serious: Yes (Other)
  Sender: FDA-Public Use
  Company Number: 2011SP057911

PATIENT
  Age: 64 Year
  Sex: Male

DRUGS (16)
  1. MIRTAZAPINE [Suspect]
     Indication: DEPRESSION
     Dosage: 15 MG;QD;PO, 30 MG;QD;PO, 15 MG;QD;PO
     Route: 048
     Dates: start: 20110916, end: 20110929
  2. MIRTAZAPINE [Suspect]
     Indication: DEPRESSION
     Dosage: 15 MG;QD;PO, 30 MG;QD;PO, 15 MG;QD;PO
     Route: 048
     Dates: start: 20110930, end: 20111114
  3. MIRTAZAPINE [Suspect]
     Indication: DEPRESSION
     Dosage: 15 MG;QD;PO, 30 MG;QD;PO, 15 MG;QD;PO
     Route: 048
     Dates: start: 20111115
  4. SEROQUEL [Concomitant]
  5. DESYREL [Concomitant]
  6. SULPIRIDE [Concomitant]
  7. CHINESE HERBAL MEDICINE [Concomitant]
  8. BETAMETHASONE BUTYRATE PROPIONATE [Concomitant]
  9. AMOBAN [Concomitant]
  10. MONTELUKAST SODIUM [Concomitant]
  11. LENDORMIN [Concomitant]
  12. PREDNISOLONE [Concomitant]
  13. PREDNISOLONE [Concomitant]
  14. LANSOPRAZOLE [Concomitant]
  15. TERBINAFINE HCL [Concomitant]
  16. RIKKUNSHITO [Concomitant]

REACTIONS (4)
  - DISEASE RECURRENCE [None]
  - GASTROENTERITIS EOSINOPHILIC [None]
  - GASTRIC ULCER [None]
  - EOSINOPHIL COUNT INCREASED [None]
